FAERS Safety Report 10214224 (Version 1)
Quarter: 2014Q2

REPORT INFORMATION
  Report Type: Spontaneous
  Country: US (occurrence: None)
  Receive Date: 20140602
  Receipt Date: 20140602
  Transmission Date: 20141212
  Serious: No
  Sender: FDA-Public Use
  Company Number: None

PATIENT
  Age: 39 Year
  Sex: Female
  Weight: 72.58 kg

DRUGS (2)
  1. LAMOTRIGINE [Suspect]
     Indication: SCHIZOAFFECTIVE DISORDER
     Dosage: 3 1/2 PO HS
     Route: 048
     Dates: start: 20080123, end: 20140530
  2. ABILIFY [Suspect]
     Dosage: I PO HS
     Route: 048
     Dates: start: 20090223, end: 20140530

REACTIONS (2)
  - Dysgeusia [None]
  - Dysgeusia [None]
